FAERS Safety Report 6782140-5 (Version None)
Quarter: 2010Q2

REPORT INFORMATION
  Report Type: 
  Country: None (occurrence: None)
  Receive Date: 20100621
  Receipt Date: 20100615
  Transmission Date: 20101027
  Serious: Yes (Death, Life-Threatening, Hospitalization, Disabling, Other)
  Sender: FDA-Public Use
  Company Number: US-MERCK-1002USA02449

PATIENT
  Age: 72 Year
  Sex: Female
  Weight: 80 kg

DRUGS (14)
  1. VYTORIN [Suspect]
     Indication: HYPERLIPIDAEMIA
     Route: 048
     Dates: start: 20071010, end: 20071112
  2. LISINOPRIL [Concomitant]
     Route: 048
  3. FLUOXETINE HCL [Concomitant]
     Route: 048
  4. NORTRIPTYLINE [Concomitant]
     Route: 048
  5. HYDROCHLOROTHIAZIDE [Concomitant]
     Route: 048
  6. GLIPIZIDE [Concomitant]
     Route: 048
  7. METFORMIN [Concomitant]
     Route: 048
  8. ATENOLOL [Concomitant]
     Route: 048
  9. GUAIFENESIN AND PHENYLEPHRINE HYDROCHLORIDE [Concomitant]
     Route: 048
  10. TRIAMCINOLONE ACETONIDE [Concomitant]
     Route: 061
  11. ZOCOR [Suspect]
     Indication: LOW DENSITY LIPOPROTEIN INCREASED
     Route: 048
     Dates: start: 20060810, end: 20070717
  12. ZOCOR [Suspect]
     Route: 048
     Dates: start: 20070718, end: 20070720
  13. ZOCOR [Suspect]
     Route: 048
     Dates: start: 20070822
  14. LOVASTATIN [Concomitant]
     Route: 048
     Dates: end: 20060810

REACTIONS (7)
  - ASTHENIA [None]
  - BLOOD CREATINE PHOSPHOKINASE INCREASED [None]
  - CARDIAC ARREST [None]
  - FATIGUE [None]
  - HYPERKALAEMIA [None]
  - RENAL FAILURE ACUTE [None]
  - RHABDOMYOLYSIS [None]
